FAERS Safety Report 9652860 (Version 1)
Quarter: 2013Q4

REPORT INFORMATION
  Report Type: Spontaneous
  Country: US (occurrence: US)
  Receive Date: 20131029
  Receipt Date: 20131029
  Transmission Date: 20140711
  Serious: Yes (Hospitalization, Other)
  Sender: FDA-Public Use
  Company Number: US-PFIZER INC-2013306748

PATIENT
  Sex: Male

DRUGS (1)
  1. VFEND [Suspect]
     Dosage: UNK

REACTIONS (3)
  - Thrombosis [Unknown]
  - Lung disorder [Unknown]
  - Pneumonia [Unknown]
